FAERS Safety Report 5713417-X (Version None)
Quarter: 2008Q2

REPORT INFORMATION
  Report Type: 
  Country: None (occurrence: None)
  Receive Date: 20080422
  Receipt Date: 20080410
  Transmission Date: 20081010
  Serious: Yes (Other)
  Sender: FDA-Public Use
  Company Number: US-PFIZER INC-2008032266

PATIENT
  Age: 64 Year
  Sex: Male
  Weight: 63.5 kg

DRUGS (6)
  1. DILANTIN [Suspect]
     Indication: CONVULSION
  2. CHANTIX [Interacting]
     Indication: SMOKING CESSATION THERAPY
  3. CRESTOR [Concomitant]
  4. ZEBETA [Concomitant]
  5. LISINOPRIL [Concomitant]
  6. NEURONTIN [Concomitant]

REACTIONS (4)
  - ANTICONVULSANT DRUG LEVEL INCREASED [None]
  - DRUG INTERACTION [None]
  - DYSGEUSIA [None]
  - SKIN LESION [None]
